FAERS Safety Report 5342678-4 (Version None)
Quarter: 2007Q2

REPORT INFORMATION
  Report Type: 
  Country: None (occurrence: None)
  Receive Date: 20070416
  Receipt Date: 20070112
  Transmission Date: 20071010
  Serious: No
  Sender: FDA-Public Use
  Company Number: 2007SP000149

PATIENT
  Age: 58 Year
  Sex: Female
  Weight: 99.7913 kg

DRUGS (12)
  1. LUNESTA [Suspect]
     Indication: INSOMNIA
     Dosage: 3 MG; ORAL
     Route: 048
     Dates: start: 20070103
  2. ENALAPRIL MALEATE [Concomitant]
  3. LOPRESSOR [Concomitant]
  4. ZYRTEC [Concomitant]
  5. ULTRAM [Concomitant]
  6. PROPACET 100 [Concomitant]
  7. SOMA [Concomitant]
  8. REMICADE [Concomitant]
  9. IBANDRONATE SODIUM [Concomitant]
  10. FOLIC ACID [Concomitant]
  11. LEXAPRO [Concomitant]
  12. MOBIC [Concomitant]

REACTIONS (1)
  - DYSGEUSIA [None]
